FAERS Safety Report 6030066-7 (Version None)
Quarter: 2008Q4

REPORT INFORMATION
  Report Type: 
  Country: None (occurrence: None)
  Receive Date: 20081222
  Receipt Date: 20080911
  Transmission Date: 20090506
  Serious: Yes (Other)
  Sender: FDA-Public Use
  Company Number: US-WYE-H05959608

PATIENT

DRUGS (1)
  1. PRISTIQ [Suspect]
     Indication: DEPRESSION
     Dosage: 50 MG, UNSPECIFIED FREQUENCY, ORAL; ^RECENT^
     Route: 048

REACTIONS (2)
  - FEELING ABNORMAL [None]
  - NAUSEA [None]
